FAERS Safety Report 7055696-5 (Version None)
Quarter: 2010Q4

REPORT INFORMATION
  Report Type: 
  Country: None (occurrence: None)
  Receive Date: 20101021
  Receipt Date: 20101018
  Transmission Date: 20110411
  Serious: Yes (Death, Life-Threatening)
  Sender: FDA-Public Use
  Company Number: CA-JNJFOC-20101005222

PATIENT
  Sex: Female

DRUGS (13)
  1. SIMPONI [Suspect]
     Indication: RHEUMATOID ARTHRITIS
     Route: 058
  2. SIMPONI [Suspect]
     Route: 058
  3. SIMPONI [Suspect]
     Route: 058
  4. SIMPONI [Suspect]
     Route: 058
  5. SIMPONI [Suspect]
     Route: 058
  6. SIMPONI [Suspect]
     Route: 058
  7. SIMPONI [Suspect]
     Route: 058
  8. SIMPONI [Suspect]
     Route: 058
  9. SIMPONI [Suspect]
     Route: 058
  10. SIMPONI [Suspect]
     Route: 058
  11. SIMPONI [Suspect]
     Route: 058
  12. SIMPONI [Suspect]
     Route: 058
  13. HEPARIN [Interacting]
     Indication: PULMONARY EMBOLISM

REACTIONS (6)
  - CARDIAC ARREST [None]
  - DIPLEGIA [None]
  - DRUG INTERACTION [None]
  - KNEE ARTHROPLASTY [None]
  - PULMONARY EMBOLISM [None]
  - THROMBOSIS [None]
